FAERS Safety Report 8894955 (Version 1)
Quarter: 2012Q4

REPORT INFORMATION
  Report Type: 
  Country: US (occurrence: US)
  Receive Date: 20121107
  Receipt Date: 20121107
  Transmission Date: 20130627
  Serious: No
  Sender: FDA-Public Use
  Company Number: US-AMGEN-USASP2011049357

PATIENT
  Age: 49 Year
  Sex: Male

DRUGS (1)
  1. ENBREL [Suspect]
     Indication: ANKYLOSING SPONDYLITIS
     Dosage: 50 mg, q2wk
     Dates: start: 20040607

REACTIONS (4)
  - Emphysema [Recovered/Resolved]
  - Chronic obstructive pulmonary disease [Recovered/Resolved]
  - Right ventricular hypertrophy [Recovered/Resolved]
  - Hypoaesthesia [Unknown]
